FAERS Safety Report 24233876 (Version 1)
Quarter: 2024Q3

REPORT INFORMATION
  Report Type: Report from Study
  Country: IL (occurrence: IL)
  Receive Date: 20240821
  Receipt Date: 20240821
  Transmission Date: 20241017
  Serious: Yes (Death, Other)
  Sender: ABBVIE
  Company Number: IL-ABBVIE-4145183

PATIENT
  Age: 70 Year
  Sex: Male
  Weight: 78 kg

DRUGS (32)
  1. VENETOCLAX [Suspect]
     Active Substance: VENETOCLAX
     Indication: Chronic lymphocytic leukaemia
     Dosage: DURATION TEXT: RAMP UP
     Route: 048
     Dates: start: 20211128, end: 20211204
  2. VENETOCLAX [Suspect]
     Active Substance: VENETOCLAX
     Indication: Chronic lymphocytic leukaemia
     Dosage: DURATION TEXT: RAMP UP
     Route: 048
     Dates: start: 20211205, end: 20211211
  3. VENETOCLAX [Suspect]
     Active Substance: VENETOCLAX
     Indication: Chronic lymphocytic leukaemia
     Route: 048
     Dates: start: 20211123, end: 20211127
  4. VENETOCLAX [Suspect]
     Active Substance: VENETOCLAX
     Indication: Chronic lymphocytic leukaemia
     Dosage: DURATION TEXT: RAMP UP
     Route: 048
     Dates: start: 20211212, end: 20211227
  5. VENETOCLAX [Suspect]
     Active Substance: VENETOCLAX
     Indication: Chronic lymphocytic leukaemia
     Dosage: DURATION TEXT: RAMP UP,
     Route: 048
     Dates: start: 20211228, end: 20230814
  6. immunoglobulin [Concomitant]
     Indication: Prophylaxis
     Route: 042
     Dates: start: 20220220, end: 202303
  7. immunoglobulin [Concomitant]
     Indication: Prophylaxis
     Route: 042
     Dates: start: 2016, end: 20220219
  8. METFORMIN HYDROCHLORIDE\SITAGLIPTIN PHOSPHATE [Concomitant]
     Active Substance: METFORMIN HYDROCHLORIDE\SITAGLIPTIN PHOSPHATE
     Indication: Diabetes mellitus
     Dates: start: 20130303
  9. RITUXIMAB [Suspect]
     Active Substance: RITUXIMAB
     Indication: Chronic lymphocytic leukaemia
     Dosage: FREQUENCY TEXT: CYCLE NUMBER 3
     Route: 065
     Dates: start: 20220220, end: 20220220
  10. RITUXIMAB [Suspect]
     Active Substance: RITUXIMAB
     Indication: Chronic lymphocytic leukaemia
     Dosage: FREQUENCY TEXT: CYCLE NUMBER 6
     Route: 065
     Dates: start: 20220529, end: 20220529
  11. RITUXIMAB [Suspect]
     Active Substance: RITUXIMAB
     Indication: Chronic lymphocytic leukaemia
     Dosage: FREQUENCY TEXT: CYCLE NUMBER 1
     Route: 065
     Dates: start: 20211226, end: 20211226
  12. RITUXIMAB [Suspect]
     Active Substance: RITUXIMAB
     Indication: Chronic lymphocytic leukaemia
     Dosage: FREQUENCY TEXT: CYCLE NUMBER 2
     Route: 065
     Dates: start: 20220123, end: 20220123
  13. RITUXIMAB [Suspect]
     Active Substance: RITUXIMAB
     Indication: Chronic lymphocytic leukaemia
     Dosage: FREQUENCY TEXT: CYCLE NUMBER 5
     Route: 065
     Dates: start: 20220424, end: 20220424
  14. RITUXIMAB [Suspect]
     Active Substance: RITUXIMAB
     Indication: Chronic lymphocytic leukaemia
     Dosage: FREQUENCY TEXT: CYCLE NUMBER 4
     Route: 065
     Dates: start: 20220320, end: 20220320
  15. HYDROCORTISONE [Concomitant]
     Active Substance: HYDROCORTISONE\HYDROCORTISONE ACETATE
     Indication: Premedication
     Dates: start: 20211226
  16. ACETAMINOPHEN [Concomitant]
     Active Substance: ACETAMINOPHEN
     Indication: Premedication
     Dates: start: 20211226
  17. EVUSHELD [Concomitant]
     Active Substance: CILGAVIMAB\TIXAGEVIMAB
     Indication: COVID-19 prophylaxis
     Dates: start: 202205, end: 202205
  18. BISOPROLOL FUMARATE [Concomitant]
     Active Substance: BISOPROLOL FUMARATE
     Indication: Hypertension
     Dates: start: 20130303
  19. ALLOPURINOL [Concomitant]
     Active Substance: ALLOPURINOL
     Indication: Gouty arthritis
     Dates: start: 20130303
  20. FLUTICASONE FUROATE [Concomitant]
     Active Substance: FLUTICASONE FUROATE
     Indication: Bronchiectasis
     Dates: start: 20140427
  21. PROMETHAZINE [Concomitant]
     Active Substance: PROMETHAZINE HYDROCHLORIDE
     Indication: Premedication
     Dates: start: 20211226
  22. PFIZER-BIONTECH COVID-19 VACCINE [Concomitant]
     Active Substance: TOZINAMERAN
     Indication: COVID-19 prophylaxis
     Dosage: 1 IN ONCE
     Route: 030
     Dates: start: 2021, end: 2021
  23. PFIZER-BIONTECH COVID-19 VACCINE [Concomitant]
     Active Substance: TOZINAMERAN
     Indication: COVID-19 prophylaxis
     Dosage: 1 IN ONCE
     Route: 030
     Dates: start: 202102, end: 202102
  24. PFIZER-BIONTECH COVID-19 VACCINE [Concomitant]
     Active Substance: TOZINAMERAN
     Indication: COVID-19 prophylaxis
     Dosage: 1 IN ONCE
     Route: 030
     Dates: start: 2022, end: 2022
  25. PFIZER-BIONTECH COVID-19 VACCINE [Concomitant]
     Active Substance: TOZINAMERAN
     Indication: COVID-19 prophylaxis
     Dosage: 1 IN ONCE
     Route: 030
     Dates: start: 202101, end: 202101
  26. SIMVASTATIN [Concomitant]
     Active Substance: SIMVASTATIN
     Indication: Myocardial ischaemia
     Dates: start: 20130303
  27. SYMBICORT [Concomitant]
     Active Substance: BUDESONIDE\FORMOTEROL FUMARATE DIHYDRATE
     Indication: Bronchiectasis
     Dates: start: 20131209
  28. ASPIRIN [Concomitant]
     Active Substance: ASPIRIN
     Indication: Myocardial ischaemia
     Dates: start: 20130303
  29. LYRICA [Concomitant]
     Active Substance: PREGABALIN
     Indication: Diabetes mellitus
     Dates: start: 20200416
  30. SODIUM CHLORIDE [Concomitant]
     Active Substance: SODIUM CHLORIDE
     Indication: Premedication
     Dates: start: 20211123, end: 20211123
  31. SODIUM CHLORIDE [Concomitant]
     Active Substance: SODIUM CHLORIDE
     Indication: Premedication
     Dates: start: 20211212, end: 20211212
  32. CILAZAPRIL ANHYDROUS [Concomitant]
     Active Substance: CILAZAPRIL ANHYDROUS
     Indication: Hypertension
     Dates: start: 20130303

REACTIONS (6)
  - Bacteraemia [Fatal]
  - Blood lactate dehydrogenase increased [Recovered/Resolved]
  - Hypokalaemia [Recovered/Resolved]
  - Dizziness [Not Recovered/Not Resolved]
  - Vitamin B12 deficiency [Recovered/Resolved]
  - Disease progression [Unknown]

NARRATIVE: CASE EVENT DATE: 20211216
